FAERS Safety Report 4578598-2 (Version None)
Quarter: 2005Q1

REPORT INFORMATION
  Report Type: 
  Country: None (occurrence: None)
  Receive Date: 20050207
  Receipt Date: 20050207
  Transmission Date: 20050727
  Serious: Yes (Other)
  Sender: FDA-Public Use
  Company Number: None

PATIENT
  Age: 7 Year
  Sex: Male
  Weight: 24.8 kg

DRUGS (3)
  1. VINCRISTINE [Suspect]
     Indication: RHABDOMYOSARCOMA
     Dosage: 1.4 EVERY 3 WEEKS INTRAVENOUS
     Route: 042
     Dates: start: 20041222, end: 20050112
  2. CYTOXAN [Suspect]
     Indication: RHABDOMYOSARCOMA
     Dosage: 2090 EVERY 3 WEEKS  INTRAVENOUS
     Route: 042
     Dates: start: 20041222, end: 20050112
  3. RADIATION THERAPY [Concomitant]

REACTIONS (1)
  - LABORATORY TEST ABNORMAL [None]
